FAERS Safety Report 24094845 (Version 2)
Quarter: 2024Q4

REPORT INFORMATION
  Report Type: Spontaneous
  Country: DE (occurrence: DE)
  Receive Date: 20240716
  Receipt Date: 20241104
  Transmission Date: 20250114
  Serious: Yes (Other)
  Sender: NOVARTIS
  Company Number: DE-SAMSUNG BIOEPIS-SB-2024-07952

PATIENT
  Age: 38 Year
  Sex: Female

DRUGS (3)
  1. SECUKINUMAB [Suspect]
     Active Substance: SECUKINUMAB
     Indication: Product used for unknown indication
     Dosage: 150 MG
     Route: 065
     Dates: end: 20240207
  2. ETANERCEPT [Suspect]
     Active Substance: ETANERCEPT
     Indication: Psoriatic arthropathy
     Dosage: 50 MG
     Route: 058
  3. ETANERCEPT [Suspect]
     Active Substance: ETANERCEPT
     Dosage: UNK
     Route: 065

REACTIONS (5)
  - Intestinal obstruction [Unknown]
  - Respiratory tract infection [Unknown]
  - Diarrhoea [Unknown]
  - Oesophagitis [Unknown]
  - Sinusitis [Unknown]
